FAERS Safety Report 22173414 (Version 1)
Quarter: 2023Q2

REPORT INFORMATION
  Report Type: Spontaneous
  Country: US (occurrence: None)
  Receive Date: 20230404
  Receipt Date: 20230404
  Transmission Date: 20230722
  Serious: No
  Sender: FDA-Public Use
  Company Number: None

PATIENT
  Sex: Female

DRUGS (1)
  1. HUMIRA [Suspect]
     Active Substance: ADALIMUMAB
     Indication: Ankylosing spondylitis
     Dosage: 40MG EVERY 14 DAYS UNDER THE SKIN?
     Route: 058
     Dates: start: 202203

REACTIONS (3)
  - Condition aggravated [None]
  - Ankylosing spondylitis [None]
  - Drug ineffective [None]
